FAERS Safety Report 4881155-1 (Version None)
Quarter: 2006Q1

REPORT INFORMATION
  Report Type: 
  Country: None (occurrence: None)
  Receive Date: 20060116
  Receipt Date: 20051122
  Transmission Date: 20060701
  Serious: Yes (Hospitalization)
  Sender: FDA-Public Use
  Company Number: US-GLAXOSMITHKLINE-B0401363A

PATIENT
  Age: 32 Year
  Sex: Male

DRUGS (11)
  1. BLINDED TRIAL MEDICATION [Suspect]
     Indication: HIV INFECTION
     Route: 048
     Dates: start: 20051004
  2. KALETRA [Suspect]
     Indication: HIV INFECTION
     Route: 048
     Dates: start: 20051004
  3. FLUCONAZOLE [Concomitant]
  4. COTRIM [Concomitant]
  5. MARINOL [Concomitant]
  6. ZITHROMAX [Concomitant]
  7. DEPAKOTE [Concomitant]
  8. CELEXA [Concomitant]
  9. VALCYTE [Concomitant]
  10. MOTRIN [Concomitant]
  11. ENTEX CAP [Concomitant]

REACTIONS (5)
  - DIARRHOEA [None]
  - FATIGUE [None]
  - GASTROENTERITIS [None]
  - NAUSEA [None]
  - VOMITING [None]
